FAERS Safety Report 5559356-9 (Version None)
Quarter: 2007Q4

REPORT INFORMATION
  Report Type: 
  Country: None (occurrence: None)
  Receive Date: 20071214
  Receipt Date: 20070928
  Transmission Date: 20080405
  Serious: No
  Sender: FDA-Public Use
  Company Number: US-ABBOTT-07P-163-0419053-00

PATIENT
  Sex: Male

DRUGS (7)
  1. HUMIRA [Suspect]
     Indication: CROHN'S DISEASE
     Route: 058
     Dates: start: 20070503, end: 20070601
  2. HUMIRA [Suspect]
     Route: 058
     Dates: start: 20070601, end: 20070916
  3. MYCOPHENOLATE MOFETIL [Suspect]
     Indication: DRUG USE FOR UNKNOWN INDICATION
     Dates: end: 20070601
  4. PREDNISONE [Concomitant]
     Indication: CROHN'S DISEASE
  5. OPIUM ALKALOIDS TOTAL [Concomitant]
     Indication: DIARRHOEA
  6. CODEINE [Concomitant]
     Indication: DIARRHOEA
  7. THYROID TAB [Concomitant]
     Indication: DRUG USE FOR UNKNOWN INDICATION

REACTIONS (3)
  - NAUSEA [None]
  - PALPITATIONS [None]
  - RHINORRHOEA [None]
